FAERS Safety Report 5686655-2 (Version None)
Quarter: 2008Q1

REPORT INFORMATION
  Report Type: 
  Country: None (occurrence: None)
  Receive Date: 20080328
  Receipt Date: 20070605
  Transmission Date: 20080703
  Serious: No
  Sender: FDA-Public Use
  Company Number: US-BAYER-US-2007-021186

PATIENT
  Age: 48 Year
  Sex: Female

DRUGS (5)
  1. MIRENA [Suspect]
     Indication: CONTRACEPTION
     Route: 015
     Dates: start: 20060401
  2. LEVOTHYROXINE SODIUM [Concomitant]
     Dosage: UNIT DOSE: 125 ?G
  3. FOLIC ACID [Concomitant]
  4. VITAMIN CAP [Concomitant]
  5. VITAMIN E [Concomitant]

REACTIONS (6)
  - ANXIETY [None]
  - ARTHRALGIA [None]
  - HYPOAESTHESIA [None]
  - MOOD SWINGS [None]
  - NERVOUSNESS [None]
  - OVULATION PAIN [None]
